FAERS Safety Report 10047140 (Version 1)
Quarter: 2014Q1

REPORT INFORMATION
  Report Type: Spontaneous
  Country: US (occurrence: US)
  Receive Date: 20140331
  Receipt Date: 20140331
  Transmission Date: 20141002
  Serious: No
  Sender: FDA-Public Use
  Company Number: US-MYLANLABS-2013S1011866

PATIENT
  Age: 40 Year
  Sex: Female
  Weight: 60.78 kg

DRUGS (3)
  1. FENTANYL TRANSDERMAL SYSTEM [Suspect]
     Indication: BACK PAIN
     Dosage: CHANGED Q. 72 HOURS
     Route: 062
     Dates: start: 201110, end: 201209
  2. FENTANYL TRANSDERMAL SYSTEM [Suspect]
     Indication: BACK PAIN
     Dosage: CHANGED Q. 72 HOURS.
     Route: 062
     Dates: start: 201209, end: 201303
  3. HYDROCHLOROTHIAZIDE [Concomitant]
     Indication: BLOOD PRESSURE INCREASED
     Route: 048
     Dates: start: 201301

REACTIONS (5)
  - Hepatic lesion [Not Recovered/Not Resolved]
  - Hepatic cyst [Not Recovered/Not Resolved]
  - Asthenia [Not Recovered/Not Resolved]
  - Application site vesicles [Recovered/Resolved]
  - Hyperhidrosis [Recovered/Resolved]
